FAERS Safety Report 7784478-1 (Version None)
Quarter: 2011Q3

REPORT INFORMATION
  Report Type: 
  Country: None (occurrence: None)
  Receive Date: 20110928
  Receipt Date: 20110919
  Transmission Date: 20111222
  Serious: Yes (Other)
  Sender: FDA-Public Use
  Company Number: PHHY2011IL83399

PATIENT
  Age: 29 Year
  Sex: Male

DRUGS (1)
  1. METFORMIN HCL [Suspect]
     Indication: TYPE 2 DIABETES MELLITUS
     Dosage: 850 MG, TID

REACTIONS (6)
  - COOMBS NEGATIVE HAEMOLYTIC ANAEMIA [None]
  - ANISOCYTOSIS [None]
  - POLYCHROMASIA [None]
  - ASTHENIA [None]
  - PUNCTATE BASOPHILIA [None]
  - JAUNDICE [None]
